FAERS Safety Report 26090873 (Version 1)
Quarter: 2025Q4

REPORT INFORMATION
  Report Type: Spontaneous
  Country: CN (occurrence: CN)
  Receive Date: 20251126
  Receipt Date: 20251126
  Transmission Date: 20260118
  Serious: Yes (Life-Threatening, Hospitalization, Disabling)
  Sender: GE HEALTHCARE
  Company Number: None

PATIENT
  Age: 59 Year
  Sex: Female
  Weight: 63 kg

DRUGS (1)
  1. OMNIPAQUE [Suspect]
     Active Substance: IOHEXOL
     Indication: Computerised tomogram abdomen
     Dosage: 70 ML, TOTAL
     Route: 041
     Dates: start: 20251110, end: 20251110

REACTIONS (11)
  - Pulse absent [Recovered/Resolved]
  - Mydriasis [Recovered/Resolved]
  - Blood pressure immeasurable [Recovered/Resolved]
  - Oxygen saturation immeasurable [Recovered/Resolved]
  - Moaning [Recovered/Resolved]
  - Oral discharge [Recovered/Resolved]
  - Loss of consciousness [Not Recovered/Not Resolved]
  - Respiratory arrest [Recovered/Resolved]
  - Cardiac arrest [Recovered/Resolved]
  - Cyanosis [Recovered/Resolved]
  - Contrast media allergy [Recovered/Resolved]

NARRATIVE: CASE EVENT DATE: 20251110
